FAERS Safety Report 10588553 (Version 1)
Quarter: 2014Q4

REPORT INFORMATION
  Report Type: Report from Study
  Country: US (occurrence: US)
  Receive Date: 20141117
  Receipt Date: 20141117
  Transmission Date: 20150529
  Serious: Yes (Other)
  Sender: FDA-Public Use
  Company Number: US-ABBVIE-14P-163-1305335-00

PATIENT
  Age: 20 Year
  Sex: Female

DRUGS (6)
  1. ADVIL [Concomitant]
     Active Substance: IBUPROFEN
     Indication: PHARYNGITIS
     Route: 048
     Dates: start: 20140828, end: 20140828
  2. NORCO [Concomitant]
     Active Substance: ACETAMINOPHEN\HYDROCODONE BITARTRATE
     Indication: PHARYNGITIS
     Dosage: 300-5 MG
     Route: 048
     Dates: start: 20140829, end: 20140829
  3. PRENATAL VITAMINS [Concomitant]
     Active Substance: VITAMINS
     Indication: PREGNANCY
     Route: 048
     Dates: start: 20140929
  4. HUMIRA [Suspect]
     Active Substance: ADALIMUMAB
     Indication: DRUG LEVEL
     Route: 058
     Dates: start: 20140806, end: 20141001
  5. AMOXICILLIN. [Concomitant]
     Active Substance: AMOXICILLIN
     Indication: PHARYNGITIS
     Route: 048
     Dates: start: 20140830, end: 20140903
  6. AMOXICILLIN AND CLAVULA. POTASSIUM [Concomitant]
     Indication: PHARYNGITIS
     Dosage: 875/125 MG
     Route: 048
     Dates: start: 20140910, end: 20140920

REACTIONS (1)
  - Abortion spontaneous [Unknown]
